FAERS Safety Report 7481547-0 (Version None)
Quarter: 2011Q2

REPORT INFORMATION
  Report Type: 
  Country: None (occurrence: None)
  Receive Date: 20110516
  Receipt Date: 20110509
  Transmission Date: 20111010
  Serious: Yes (Death, Hospitalization)
  Sender: FDA-Public Use
  Company Number: DE-JNJFOC-20110505016

PATIENT
  Sex: Male
  Weight: 93 kg

DRUGS (5)
  1. ASPIRIN [Concomitant]
     Route: 065
     Dates: start: 20110306, end: 20110318
  2. HEPARIN [Concomitant]
     Route: 065
     Dates: start: 20110306
  3. REOPRO [Suspect]
     Indication: PRODUCT USED FOR UNKNOWN INDICATION
     Dosage: BOLUS
     Route: 042
     Dates: start: 20110306, end: 20110306
  4. CLOPIDOGREL [Concomitant]
     Route: 065
     Dates: start: 20110306, end: 20110318
  5. REOPRO [Suspect]
     Route: 042
     Dates: start: 20110306, end: 20110307

REACTIONS (7)
  - PULMONARY OEDEMA [None]
  - SEPSIS [None]
  - PERITONITIS [None]
  - PNEUMONIA [None]
  - VENTRICULAR FIBRILLATION [None]
  - SYNCOPE [None]
  - INTESTINAL ISCHAEMIA [None]
